FAERS Safety Report 12188039 (Version 2)
Quarter: 2016Q2

REPORT INFORMATION
  Report Type: Spontaneous
  Country: JP (occurrence: JP)
  Receive Date: 20160317
  Receipt Date: 20160407
  Transmission Date: 20160815
  Serious: Yes (Hospitalization)
  Sender: FDA-Public Use
  Company Number: JP-BEH-2016060136

PATIENT
  Age: 26 Year
  Sex: Female

DRUGS (2)
  1. INTRAVENOUS GAMMAGLOBULIN [Suspect]
     Active Substance: HUMAN IMMUNOGLOBULIN G
     Indication: IMMUNODEFICIENCY COMMON VARIABLE
     Route: 042
  2. INTRAVENOUS GAMMAGLOBULIN [Suspect]
     Active Substance: HUMAN IMMUNOGLOBULIN G
     Indication: IMMUNODEFICIENCY COMMON VARIABLE
     Route: 042

REACTIONS (11)
  - Lateral medullary syndrome [Recovered/Resolved]
  - Horner^s syndrome [Recovered/Resolved]
  - Eyelid ptosis [Recovered/Resolved]
  - Ataxia [Recovered/Resolved]
  - Altered state of consciousness [Recovered/Resolved]
  - Dysarthria [Recovered/Resolved]
  - Thermohypoaesthesia [Recovered/Resolved]
  - Aphasia [Recovered/Resolved]
  - Areflexia [Recovered/Resolved]
  - Hypoaesthesia [Recovered/Resolved]
  - Dizziness [Recovered/Resolved]
